FAERS Safety Report 18186669 (Version 4)
Quarter: 2024Q2

REPORT INFORMATION
  Report Type: Spontaneous
  Country: US (occurrence: US)
  Receive Date: 20200824
  Receipt Date: 20240523
  Transmission Date: 20240716
  Serious: Yes (Hospitalization, Other)
  Sender: FDA-Public Use
  Company Number: US-PFIZER INC-2020082039

PATIENT
  Age: 59 Year
  Sex: Female

DRUGS (1)
  1. XELJANZ XR [Suspect]
     Active Substance: TOFACITINIB CITRATE
     Indication: Rheumatoid arthritis
     Dosage: 11 MG, 1X/DAY
     Route: 048

REACTIONS (7)
  - Pneumonia [Unknown]
  - COVID-19 [Unknown]
  - Diabetes mellitus [Unknown]
  - Drug effect less than expected [Unknown]
  - Fatigue [Unknown]
  - Pain [Unknown]
  - Weight decreased [Unknown]
